FAERS Safety Report 4405771-6 (Version None)
Quarter: 2004Q3

REPORT INFORMATION
  Report Type: 
  Country: None (occurrence: None)
  Receive Date: 20040723
  Receipt Date: 20031209
  Transmission Date: 20050211
  Serious: No
  Sender: FDA-Public Use
  Company Number: US-GLAXOSMITHKLINE-A0442507A

PATIENT
  Age: 71 Year
  Sex: Female

DRUGS (5)
  1. AVANDIA [Suspect]
     Dosage: 8MG PER DAY
     Route: 048
     Dates: start: 20030401
  2. INSULIN [Concomitant]
  3. PAXIL [Concomitant]
  4. CALCIUM WITH VITAMIN D [Concomitant]
  5. VITAMIN E [Concomitant]

REACTIONS (1)
  - BREAST PAIN [None]
